FAERS Safety Report 5934540-0 (Version None)
Quarter: 2008Q4

REPORT INFORMATION
  Report Type: 
  Country: None (occurrence: None)
  Receive Date: 20081027
  Receipt Date: 20081016
  Transmission Date: 20090506
  Serious: Yes (Hospitalization)
  Sender: FDA-Public Use
  Company Number: 20085439

PATIENT
  Sex: Female

DRUGS (1)
  1. LIORESAL [Suspect]
     Indication: MUSCLE SPASTICITY
     Dosage: MCG, DAILY, INTRATHECAL
     Route: 037

REACTIONS (9)
  - CLONUS [None]
  - DEVICE BREAKAGE [None]
  - DEVICE CONNECTION ISSUE [None]
  - DEVICE LEAKAGE [None]
  - FEELING JITTERY [None]
  - HYPERTONIA [None]
  - INTRACRANIAL HYPOTENSION [None]
  - UNDERDOSE [None]
  - WITHDRAWAL SYNDROME [None]
